FAERS Safety Report 4357654-8 (Version None)
Quarter: 2004Q2

REPORT INFORMATION
  Report Type: 
  Country: None (occurrence: None)
  Receive Date: 20040513
  Receipt Date: 20040505
  Transmission Date: 20050107
  Serious: Yes (Death, Hospitalization)
  Sender: FDA-Public Use
  Company Number: FR-MERCK-0405FRA00017

PATIENT
  Age: 39 Year
  Sex: Male

DRUGS (3)
  1. CRIXIVAN [Suspect]
     Indication: HIV INFECTION
     Route: 048
  2. NEVIRAPINE [Concomitant]
     Indication: HIV INFECTION
     Route: 048
  3. STAVUDINE [Concomitant]
     Indication: HIV INFECTION
     Route: 048

REACTIONS (12)
  - BLOOD LACTATE DEHYDROGENASE INCREASED [None]
  - BONE MARROW DEPRESSION [None]
  - BURKITT'S LYMPHOMA [None]
  - CSF TEST ABNORMAL [None]
  - DIPLOPIA [None]
  - ESCHERICHIA SEPSIS [None]
  - MOTOR DYSFUNCTION [None]
  - NAUSEA [None]
  - SEPSIS [None]
  - TOLOSA-HUNT SYNDROME [None]
  - URINARY RETENTION [None]
  - VOMITING [None]
